FAERS Safety Report 23985782 (Version 1)
Quarter: 2024Q2

REPORT INFORMATION
  Report Type: Spontaneous
  Country: IT (occurrence: IT)
  Receive Date: 20240618
  Receipt Date: 20240618
  Transmission Date: 20240715
  Serious: Yes (Hospitalization)
  Sender: FDA-Public Use
  Company Number: None

PATIENT

DRUGS (10)
  1. DOCETAXEL [Suspect]
     Active Substance: DOCETAXEL\DOCETAXEL ANHYDROUS
     Indication: Breast cancer
     Dosage: 80 MG
     Route: 042
     Dates: start: 20240524, end: 20240524
  2. DOCETAXEL [Suspect]
     Active Substance: DOCETAXEL\DOCETAXEL ANHYDROUS
     Dosage: 20 MG + 15 MG
     Route: 042
  3. AKYNZEO (NETUPITANT\PALONOSETRON) [Concomitant]
     Active Substance: NETUPITANT\PALONOSETRON
     Indication: Chemotherapy side effect prophylaxis
     Dosage: 300 MILLIGRAM
     Route: 048
     Dates: start: 20240524, end: 20240524
  4. ALIZAPRIDE [Concomitant]
     Active Substance: ALIZAPRIDE
     Indication: Chemotherapy side effect prophylaxis
     Dosage: 100 MILLIGRAM
     Route: 042
     Dates: start: 20240524, end: 20240524
  5. CHLORPHENIRAMINE MALEATE [Concomitant]
     Active Substance: CHLORPHENIRAMINE MALEATE
     Indication: Chemotherapy side effect prophylaxis
     Dosage: 10 MILLIGRAM
     Route: 042
     Dates: start: 20240524, end: 20240524
  6. DEXAMETHASONE [Concomitant]
     Active Substance: DEXAMETHASONE
     Indication: Chemotherapy side effect prophylaxis
     Dosage: 8 MILLIGRAM
     Route: 042
     Dates: start: 20240524, end: 20240524
  7. FAMOTIDINE [Concomitant]
     Active Substance: FAMOTIDINE
     Indication: Chemotherapy side effect prophylaxis
     Dosage: 40 MILLIGRAM
     Route: 048
     Dates: start: 20240524, end: 20240524
  8. HYDROCORTISONE [Concomitant]
     Active Substance: HYDROCORTISONE\HYDROCORTISONE ACETATE
     Indication: Chemotherapy side effect prophylaxis
     Dosage: 200 MILLIGRAM
     Route: 042
     Dates: start: 20240524, end: 20240524
  9. PERTUZUMAB [Concomitant]
     Active Substance: PERTUZUMAB
     Indication: Breast cancer
     Dosage: 420 MILLIGRAM
     Route: 042
     Dates: start: 20240524, end: 20240524
  10. TRASTUZUMAB [Concomitant]
     Active Substance: TRASTUZUMAB
     Indication: Breast cancer
     Dosage: 440 MILLIGRAM
     Route: 042
     Dates: start: 20240524, end: 20240524

REACTIONS (1)
  - Peritonitis [Recovering/Resolving]

NARRATIVE: CASE EVENT DATE: 20240525
